FAERS Safety Report 7828633-0 (Version None)
Quarter: 2011Q4

REPORT INFORMATION
  Report Type: 
  Country: None (occurrence: None)
  Receive Date: 20111020
  Receipt Date: 20111012
  Transmission Date: 20120403
  Serious: Yes (Hospitalization)
  Sender: FDA-Public Use
  Company Number: PHHY2011TW90728

PATIENT
  Age: 44 Year
  Sex: Female

DRUGS (1)
  1. METHIMAZOLE [Suspect]
     Indication: BASEDOW'S DISEASE

REACTIONS (7)
  - WOUND [None]
  - PYREXIA [None]
  - NECROSIS [None]
  - HISTIOCYTOSIS HAEMATOPHAGIC [None]
  - PSEUDOMONAS INFECTION [None]
  - OROPHARYNGEAL PAIN [None]
  - AGRANULOCYTOSIS [None]
